FAERS Safety Report 10013459 (Version 1)
Quarter: 2014Q1

REPORT INFORMATION
  Report Type: Spontaneous
  Country: PH (occurrence: PH)
  Receive Date: 20140314
  Receipt Date: 20140314
  Transmission Date: 20141002
  Serious: Yes (Other)
  Sender: FDA-Public Use
  Company Number: PH-009507513-1403PHL005762

PATIENT
  Sex: Male

DRUGS (1)
  1. COZAAR [Suspect]
     Dosage: 1 DF, QD
     Route: 048
     Dates: start: 20121017, end: 20131231

REACTIONS (2)
  - Drug intolerance [Unknown]
  - Rash [Unknown]
